FAERS Safety Report 10881030 (Version 2)
Quarter: 2015Q1

REPORT INFORMATION
  Report Type: Report from Study
  Country: US (occurrence: US)
  Receive Date: 20150303
  Receipt Date: 20150303
  Transmission Date: 20150721
  Serious: Yes (Hospitalization)
  Sender: FDA-Public Use
  Company Number: US-JNJFOC-20150215775

PATIENT
  Age: 37 Year
  Sex: Female

DRUGS (1)
  1. DOXIL [Suspect]
     Active Substance: DOXORUBICIN HYDROCHLORIDE
     Indication: METASTASES TO LIVER
     Route: 042
     Dates: start: 201501

REACTIONS (5)
  - Back pain [Unknown]
  - Nausea [Unknown]
  - Flank pain [Unknown]
  - Urinary tract infection [Unknown]
  - Musculoskeletal chest pain [Unknown]
